FAERS Safety Report 6203262-3 (Version None)
Quarter: 2009Q2

REPORT INFORMATION
  Report Type: 
  Country: None (occurrence: None)
  Receive Date: 20090527
  Receipt Date: 20090309
  Transmission Date: 20091009
  Serious: No
  Sender: FDA-Public Use
  Company Number: US-KINGPHARMUSA00001-K200900271

PATIENT
  Sex: Female

DRUGS (1)
  1. NEOSPORIN OPHTHALMIC SOLUTION STERILE [Suspect]

REACTIONS (1)
  - RASH [None]
